FAERS Safety Report 16269145 (Version 1)
Quarter: 2019Q2

REPORT INFORMATION
  Report Type: Spontaneous
  Country: GB (occurrence: GB)
  Receive Date: 20190503
  Receipt Date: 20190503
  Transmission Date: 20190711
  Serious: Yes (Disabling)
  Sender: FDA-Public Use
  Company Number: GB-ELI_LILLY_AND_COMPANY-GB201904012679

PATIENT
  Age: 72 Year
  Sex: Male
  Weight: 117 kg

DRUGS (3)
  1. MINIMS TROPICAMIDE [Interacting]
     Active Substance: TROPICAMIDE
     Indication: MYDRIASIS
     Dosage: UNK, UNKNOWN
     Route: 047
     Dates: start: 20190402, end: 20190402
  2. DULOXETINE HYDROCHLORIDE. [Suspect]
     Active Substance: DULOXETINE HYDROCHLORIDE
     Indication: PRODUCT USED FOR UNKNOWN INDICATION
     Dosage: UNK UNK, UNKNOWN
     Route: 065
  3. PREGABALIN ZENTIVA [Interacting]
     Active Substance: PREGABALIN
     Indication: PRODUCT USED FOR UNKNOWN INDICATION
     Dosage: UNK, UNKNOWN
     Route: 065

REACTIONS (8)
  - Vision blurred [Recovering/Resolving]
  - Depression [Recovering/Resolving]
  - Dissociation [Recovering/Resolving]
  - Balance disorder [Recovering/Resolving]
  - Mental disorder [Recovering/Resolving]
  - Derealisation [Recovering/Resolving]
  - Drug interaction [Unknown]
  - Malaise [Recovering/Resolving]

NARRATIVE: CASE EVENT DATE: 20190402
